FAERS Safety Report 6758041-5 (Version None)
Quarter: 2010Q2

REPORT INFORMATION
  Report Type: 
  Country: None (occurrence: None)
  Receive Date: 20100524
  Receipt Date: 20100222
  Transmission Date: 20101027
  Serious: No
  Sender: FDA-Public Use
  Company Number: 007605

PATIENT
  Sex: Female
  Weight: 46.2 kg

DRUGS (13)
  1. CIMZIA [Suspect]
     Indication: CROHN'S DISEASE
     Dosage: 400 MG MONTHLY SUBCUTANEOUS
     Route: 058
     Dates: start: 20090528
  2. PREDNISONE [Concomitant]
  3. ASACOL [Concomitant]
  4. FERREX [Concomitant]
  5. LEXAPRO [Concomitant]
  6. VITAMIN B12 NOS [Concomitant]
  7. CALCARB WITH VITAMIN D [Concomitant]
  8. CENOVIS MEGA CALCIUM PLUS D [Concomitant]
  9. FISH OIL [Concomitant]
  10. CENTRUM [Concomitant]
  11. FORTEO [Concomitant]
  12. TEMAZEPAM [Concomitant]
  13. LONOX [Concomitant]

REACTIONS (3)
  - DEPRESSION [None]
  - FATIGUE [None]
  - INJECTION SITE DISCOLOURATION [None]
